FAERS Safety Report 10611937 (Version 3)
Quarter: 2014Q4

REPORT INFORMATION
  Report Type: Spontaneous
  Country: US (occurrence: US)
  Receive Date: 20141126
  Receipt Date: 20141222
  Transmission Date: 20150529
  Serious: No
  Sender: FDA-Public Use
  Company Number: US-ASTELLAS-2014US011056

PATIENT
  Sex: Female

DRUGS (1)
  1. VESICARE [Suspect]
     Active Substance: SOLIFENACIN SUCCINATE
     Indication: CYSTITIS INTERSTITIAL
     Route: 065

REACTIONS (4)
  - Drug ineffective [Unknown]
  - Abdominal pain [Recovering/Resolving]
  - Adverse drug reaction [Unknown]
  - Product use issue [Unknown]
